FAERS Safety Report 6283028-9 (Version None)
Quarter: 2009Q3

REPORT INFORMATION
  Report Type: 
  Country: None (occurrence: None)
  Receive Date: 20090724
  Receipt Date: 20090715
  Transmission Date: 20100115
  Serious: Yes (Other)
  Sender: FDA-Public Use
  Company Number: GB-BRISTOL-MYERS SQUIBB COMPANY-14711030

PATIENT

DRUGS (2)
  1. MITOTANE [Suspect]
     Indication: ADRENAL CARCINOMA
  2. STEROIDS [Concomitant]

REACTIONS (1)
  - HEPATITIS [None]
